FAERS Safety Report 17819096 (Version 1)
Quarter: 2020Q2

REPORT INFORMATION
  Report Type: Spontaneous
  Country: GB (occurrence: GB)
  Receive Date: 20200523
  Receipt Date: 20200523
  Transmission Date: 20200714
  Serious: Yes (Other)
  Sender: FDA-Public Use
  Company Number: GB-ACCORD-183124

PATIENT
  Age: 26 Year
  Sex: Male
  Weight: 69.85 kg

DRUGS (2)
  1. FINASTERIDE. [Suspect]
     Active Substance: FINASTERIDE
     Indication: ANDROGENETIC ALOPECIA
     Route: 048
     Dates: end: 20200314
  2. FINASTERIDE. [Suspect]
     Active Substance: FINASTERIDE
     Indication: ANDROGENETIC ALOPECIA
     Dosage: 1MG FOR 14 DAYS THEN 0.5MG FOR 2 WEEKS
     Route: 048
     Dates: start: 20200207, end: 20200221

REACTIONS (7)
  - Suicidal ideation [Not Recovered/Not Resolved]
  - Dizziness [Unknown]
  - Feeling abnormal [Unknown]
  - Negative thoughts [Unknown]
  - Mental disorder [Unknown]
  - Depressed mood [Unknown]
  - Withdrawal syndrome [Unknown]

NARRATIVE: CASE EVENT DATE: 20200328
